FAERS Safety Report 24878849 (Version 1)
Quarter: 2025Q1

REPORT INFORMATION
  Report Type: Spontaneous
  Country: US (occurrence: US)
  Receive Date: 20250123
  Receipt Date: 20250123
  Transmission Date: 20250409
  Serious: Yes (Death, Other)
  Sender: PFIZER
  Company Number: US-PFIZER INC-202500012917

PATIENT
  Age: 60 Year
  Sex: Male

DRUGS (3)
  1. HYDROMORPHONE HYDROCHLORIDE [Suspect]
     Active Substance: HYDROMORPHONE HYDROCHLORIDE
     Route: 065
  2. DIAZEPAM [Suspect]
     Active Substance: DIAZEPAM
     Route: 065
  3. OXYCODONE [Suspect]
     Active Substance: OXYCODONE
     Route: 065

REACTIONS (1)
  - Death [Fatal]

NARRATIVE: CASE EVENT DATE: 20230101
